FAERS Safety Report 5123012-1 (Version None)
Quarter: 2006Q4

REPORT INFORMATION
  Report Type: 
  Country: None (occurrence: None)
  Receive Date: 20061005
  Receipt Date: 20060919
  Transmission Date: 20070319
  Serious: Yes (Death, Hospitalization)
  Sender: FDA-Public Use
  Company Number: US200606002367

PATIENT
  Sex: Male
  Weight: 83 kg

DRUGS (2)
  1. FORTEO [Suspect]
     Indication: OSTEOPOROSIS
     Dosage: 20 UG, DAILY (1/D)
     Dates: end: 20060121
  2. FORTEO PEN (FORTEO PEN) [Concomitant]

REACTIONS (6)
  - DEEP VEIN THROMBOSIS [None]
  - RESPIRATORY ARREST [None]
  - RESPIRATORY FAILURE [None]
  - SHOCK [None]
  - SYNCOPE [None]
  - ULCER HAEMORRHAGE [None]
